FAERS Safety Report 7423136-X (Version None)
Quarter: 2011Q2

REPORT INFORMATION
  Report Type: 
  Country: None (occurrence: None)
  Receive Date: 20110413
  Receipt Date: 20110413
  Transmission Date: 20111010
  Serious: Yes (Other)
  Sender: FDA-Public Use
  Company Number: None

PATIENT
  Sex: Female
  Weight: 61.2356 kg

DRUGS (1)
  1. SERTRALINE HYDROCHLORIDE [Suspect]
     Indication: PANIC ATTACK
     Dosage: 50MG 1XDAY PO
     Route: 048
     Dates: start: 20110205, end: 20110410

REACTIONS (6)
  - DEPRESSION [None]
  - PANIC ATTACK [None]
  - PRODUCT QUALITY ISSUE [None]
  - DIARRHOEA [None]
  - ANXIETY [None]
  - NIGHTMARE [None]
